FAERS Safety Report 14104242 (Version 1)
Quarter: 2017Q4

REPORT INFORMATION
  Report Type: Spontaneous
  Country: US (occurrence: US)
  Receive Date: 20171018
  Receipt Date: 20171018
  Transmission Date: 20180321
  Serious: No
  Sender: FDA-Public Use
  Company Number: US-AMGEN-USASP2017102453

PATIENT
  Age: 66 Year
  Sex: Female
  Weight: 53.52 kg

DRUGS (3)
  1. VITAMIN D [Concomitant]
     Active Substance: CHOLECALCIFEROL
     Dosage: 6000 IU, UNK
     Dates: start: 201506
  2. SYNTHROID [Concomitant]
     Active Substance: LEVOTHYROXINE SODIUM
     Dosage: UNK
     Dates: start: 1990
  3. PROLIA [Suspect]
     Active Substance: DENOSUMAB
     Indication: OSTEOPOROSIS POSTMENOPAUSAL
     Dosage: UNK
     Route: 058
     Dates: start: 20170306

REACTIONS (5)
  - Gait disturbance [Not Recovered/Not Resolved]
  - Abdominal pain lower [Recovered/Resolved]
  - Groin pain [Unknown]
  - Abdominal discomfort [Unknown]
  - Hepatic cyst [Unknown]

NARRATIVE: CASE EVENT DATE: 2017
